FAERS Safety Report 25605285 (Version 1)
Quarter: 2025Q3

REPORT INFORMATION
  Report Type: Spontaneous
  Country: US (occurrence: None)
  Receive Date: 20250724
  Receipt Date: 20250724
  Transmission Date: 20251021
  Serious: Yes (Hospitalization)
  Sender: FDA-CTU
  Company Number: None

PATIENT
  Sex: Female

DRUGS (3)
  1. ACTEMRA [Suspect]
     Active Substance: TOCILIZUMAB
     Indication: Rheumatoid arthritis
     Route: 058
  2. ACTEMRA INJ 80MG/4ML [Concomitant]
  3. TYMLOS [Concomitant]
     Active Substance: ABALOPARATIDE

REACTIONS (4)
  - Condition aggravated [None]
  - Loss of personal independence in daily activities [None]
  - Pain [None]
  - Intentional dose omission [None]
